FAERS Safety Report 6259795-7 (Version None)
Quarter: 2009Q3

REPORT INFORMATION
  Report Type: 
  Country: None (occurrence: None)
  Receive Date: 20090706
  Receipt Date: 20090624
  Transmission Date: 20100115
  Serious: No
  Sender: FDA-Public Use
  Company Number: B0578776A

PATIENT
  Age: 33 Year
  Sex: Male

DRUGS (1)
  1. ZYBAN [Suspect]
     Indication: EX-TOBACCO USER
     Dosage: 150 MG/ ORAL
     Route: 048
     Dates: start: 20000715, end: 20000718

REACTIONS (1)
  - ANGINA PECTORIS [None]
